FAERS Safety Report 4929277-0 (Version None)
Quarter: 2006Q1

REPORT INFORMATION
  Report Type: 
  Country: None (occurrence: None)
  Receive Date: 20060223
  Receipt Date: 20060202
  Transmission Date: 20060701
  Serious: Yes (Other)
  Sender: FDA-Public Use
  Company Number: US200601003485

PATIENT
  Age: 82 Year
  Sex: Female

DRUGS (2)
  1. FORTEO [Suspect]
     Indication: OSTEOPOROSIS
     Dosage: 20 UG, DAILY (1/D)
     Dates: start: 20040801
  2. FORTEO PEN (FORTEO PEN) PEN DISPOSABLEC [Concomitant]

REACTIONS (2)
  - BASAL CELL CARCINOMA [None]
  - PHARMACEUTICAL PRODUCT COMPLAINT [None]
